FAERS Safety Report 23116390 (Version 1)
Quarter: 2023Q4

REPORT INFORMATION
  Report Type: Spontaneous
  Country: US (occurrence: None)
  Receive Date: 20231027
  Receipt Date: 20231027
  Transmission Date: 20240109
  Serious: No
  Sender: FDA-Public Use
  Company Number: None

PATIENT
  Age: 23 Year
  Sex: Male

DRUGS (1)
  1. RINVOQ [Suspect]
     Active Substance: UPADACITINIB
     Dosage: FREQUENCY : DAILY;?
     Route: 048
     Dates: start: 20230813

REACTIONS (5)
  - Heart rate increased [None]
  - Flushing [None]
  - Chills [None]
  - Dry mouth [None]
  - Infusion related reaction [None]

NARRATIVE: CASE EVENT DATE: 20231027
